FAERS Safety Report 9382376 (Version 1)
Quarter: 2013Q3

REPORT INFORMATION
  Report Type: Report from Study
  Country: VE (occurrence: VE)
  Receive Date: 20130703
  Receipt Date: 20130703
  Transmission Date: 20140515
  Serious: Yes (Other)
  Sender: FDA-Public Use
  Company Number: PHHY2013VE067360

PATIENT
  Age: 60 Year
  Sex: Male

DRUGS (4)
  1. EXJADE [Suspect]
     Indication: IRON OVERLOAD
     Dosage: 1000 MG, DAILY
     Route: 048
     Dates: start: 201201, end: 201212
  2. EXJADE [Suspect]
     Dosage: 1000 MG, DAILY
     Route: 048
     Dates: start: 201302, end: 201302
  3. CHEMOTHERAPEUTICS [Concomitant]
     Indication: ACUTE MYELOID LEUKAEMIA
     Dosage: UNK
     Route: 042
     Dates: start: 201112
  4. ESOZ [Concomitant]
     Dosage: UNK MG, UNK
     Route: 048
     Dates: start: 201304

REACTIONS (1)
  - Cerebrovascular accident [Recovered/Resolved]
